FAERS Safety Report 5668532-6 (Version None)
Quarter: 2008Q1

REPORT INFORMATION
  Report Type: 
  Country: None (occurrence: None)
  Receive Date: 20080315
  Receipt Date: 20080227
  Transmission Date: 20080703
  Serious: No
  Sender: FDA-Public Use
  Company Number: US-ABBOTT-08P-163-0440242-00

PATIENT
  Sex: Male
  Weight: 77.18 kg

DRUGS (3)
  1. HUMIRA [Suspect]
     Indication: CROHN'S DISEASE
     Dosage: SYRINGE
     Dates: start: 20060101, end: 20060101
  2. HUMIRA [Suspect]
     Dosage: SYRINGE
     Dates: start: 20060101, end: 20060101
  3. HUMIRA [Suspect]
     Dosage: PEN
     Dates: start: 20080101

REACTIONS (1)
  - ACCIDENTAL EXPOSURE [None]
